FAERS Safety Report 5753885-0 (Version None)
Quarter: 2008Q2

REPORT INFORMATION
  Report Type: 
  Country: None (occurrence: None)
  Receive Date: 20080530
  Receipt Date: 20080528
  Transmission Date: 20081010
  Serious: Yes (Hospitalization)
  Sender: FDA-Public Use
  Company Number: B0508221A

PATIENT
  Age: 17 Year
  Weight: 55 kg

DRUGS (7)
  1. RELENZA [Suspect]
     Indication: INFLUENZA
     Dosage: 10MG TWICE PER DAY
     Route: 055
     Dates: start: 20080126
  2. PL [Suspect]
     Indication: DRUG USE FOR UNKNOWN INDICATION
     Route: 048
     Dates: start: 20080125, end: 20080128
  3. CEFZON [Suspect]
     Indication: DRUG USE FOR UNKNOWN INDICATION
     Route: 048
     Dates: start: 20080125, end: 20080128
  4. CELESTAMINE TAB [Suspect]
     Indication: DRUG USE FOR UNKNOWN INDICATION
     Route: 048
     Dates: start: 20080125, end: 20080128
  5. PA [Suspect]
     Indication: DRUG USE FOR UNKNOWN INDICATION
     Route: 065
     Dates: start: 20080125, end: 20080128
  6. LOXONIN [Suspect]
     Indication: DRUG USE FOR UNKNOWN INDICATION
     Route: 065
     Dates: start: 20080125, end: 20080128
  7. PRANOPROFEN [Suspect]
     Route: 065
     Dates: start: 20080125, end: 20080128

REACTIONS (14)
  - AMNESIA [None]
  - DELUSION [None]
  - DEPRESSED LEVEL OF CONSCIOUSNESS [None]
  - DISINHIBITION [None]
  - DISORIENTATION [None]
  - ENCEPHALITIS [None]
  - HALLUCINATION [None]
  - HYPERACUSIS [None]
  - INCREASED APPETITE [None]
  - INSOMNIA [None]
  - LOGORRHOEA [None]
  - PHOTOSENSITIVITY REACTION [None]
  - RESTLESSNESS [None]
  - SOMNOLENCE [None]
